FAERS Safety Report 8150061-1 (Version None)
Quarter: 2012Q1

REPORT INFORMATION
  Report Type: 
  Country: None (occurrence: None)
  Receive Date: 20120219
  Receipt Date: 20120209
  Transmission Date: 20120608
  Serious: Yes (Death)
  Sender: FDA-Public Use
  Company Number: BE-BRISTOL-MYERS SQUIBB COMPANY-16389843

PATIENT
  Age: 64 Year
  Sex: Male

DRUGS (1)
  1. LYSODREN [Suspect]
     Indication: ADRENOCORTICAL CARCINOMA
     Dosage: 18OCT11 TO 08NO11 2.5G 09NOV11 TO 17NO11 3G 18NOV11 TO 05D11 3.5G 06DEC11 TO 18D11 4G 19DEC11 6G
     Dates: start: 20110909

REACTIONS (2)
  - NEOPLASM PROGRESSION [None]
  - RENAL FAILURE [None]
